FAERS Safety Report 20745634 (Version 1)
Quarter: 2022Q2

REPORT INFORMATION
  Report Type: Spontaneous
  Country: US (occurrence: US)
  Receive Date: 20220425
  Receipt Date: 20220425
  Transmission Date: 20220720
  Serious: Yes (Other)
  Sender: FDA-Public Use
  Company Number: US-GLAXOSMITHKLINE-US2022GSK066638

PATIENT
  Age: 61 Year
  Sex: Male

DRUGS (4)
  1. BELANTAMAB MAFODOTIN [Suspect]
     Active Substance: BELANTAMAB MAFODOTIN
     Indication: Plasma cell myeloma
     Dosage: SIX ONCE-MONTHLY
  2. DARATUMUMAB [Concomitant]
     Active Substance: DARATUMUMAB
     Indication: Plasma cell myeloma
     Dosage: UNK
  3. CYCLOPHOSPHAMIDE [Concomitant]
     Active Substance: CYCLOPHOSPHAMIDE
     Indication: Plasma cell myeloma
     Dosage: UNK
  4. SELINEXOR [Concomitant]
     Active Substance: SELINEXOR
     Indication: Plasma cell myeloma
     Dosage: UNK

REACTIONS (11)
  - Keratopathy [Recovered/Resolved]
  - Visual acuity reduced [Recovered/Resolved]
  - Plasmacytoma [Recovered/Resolved]
  - Photophobia [Recovered/Resolved]
  - Drug ineffective [Recovered/Resolved]
  - Disease progression [Recovered/Resolved]
  - Corneal toxicity [Recovered/Resolved]
  - Neoplasm progression [Recovered/Resolved]
  - Iris neoplasm [Recovered/Resolved]
  - Iritis [Recovered/Resolved]
  - Scleritis [Recovered/Resolved]
